FAERS Safety Report 7595545-X (Version None)
Quarter: 2011Q3

REPORT INFORMATION
  Report Type: 
  Country: None (occurrence: None)
  Receive Date: 20110707
  Receipt Date: 20110615
  Transmission Date: 20111222
  Serious: Yes (Hospitalization)
  Sender: FDA-Public Use
  Company Number: US-GLAXOSMITHKLINE-A0869773A

PATIENT
  Age: 40 Year
  Sex: Male
  Weight: 100.9 kg

DRUGS (8)
  1. AVANDIA [Suspect]
     Indication: DIABETES MELLITUS
     Dosage: 4MG PER DAY
     Route: 048
     Dates: start: 20020204, end: 20050624
  2. PROTONIX [Concomitant]
  3. AVANDAMET [Suspect]
     Indication: DIABETES MELLITUS
     Route: 048
     Dates: start: 20051227, end: 20070302
  4. TOPROL-XL [Concomitant]
  5. GLUCOPHAGE [Concomitant]
  6. VIAGRA [Concomitant]
  7. ZOCOR [Concomitant]
  8. ATACAND [Concomitant]

REACTIONS (1)
  - MYOCARDIAL INFARCTION [None]
